FAERS Safety Report 15848573 (Version 1)
Quarter: 2019Q1

REPORT INFORMATION
  Report Type: Spontaneous
  Country: US (occurrence: US)
  Receive Date: 20190121
  Receipt Date: 20190121
  Transmission Date: 20190417
  Serious: Yes (Death, Hospitalization, Other)
  Sender: FDA-Public Use
  Company Number: US-APOTEX-2019AP006263

PATIENT
  Age: 23 Year
  Sex: Female

DRUGS (3)
  1. ATROPINE W/DIPHENOXYLATE           /00034001/ [Suspect]
     Active Substance: ATROPINE SULFATE\DIPHENOXYLATE
     Indication: DRUG DEPENDENCE
     Route: 048
  2. LOPERAMIDE [Suspect]
     Active Substance: LOPERAMIDE
     Indication: DRUG DEPENDENCE
     Route: 048
  3. TRAZODONE [Suspect]
     Active Substance: TRAZODONE HYDROCHLORIDE
     Indication: PRODUCT USED FOR UNKNOWN INDICATION
     Dosage: UNK
     Route: 048

REACTIONS (12)
  - Unresponsive to stimuli [Fatal]
  - Intentional product use issue [Fatal]
  - Tachycardia [Fatal]
  - Cardio-respiratory arrest [Fatal]
  - Hypotension [Fatal]
  - Myocardial infarction [Fatal]
  - Pneumonia [Fatal]
  - Cyanosis [Fatal]
  - Brain death [Fatal]
  - Brain injury [Fatal]
  - Pulmonary embolism [Fatal]
  - Toxicity to various agents [Fatal]
